FAERS Safety Report 5236522-3 (Version None)
Quarter: 2007Q1

REPORT INFORMATION
  Report Type: 
  Country: None (occurrence: None)
  Receive Date: 20070208
  Receipt Date: 20070125
  Transmission Date: 20070707
  Serious: Yes (Hospitalization, Other)
  Sender: FDA-Public Use
  Company Number: 15588

PATIENT
  Age: 55 Year
  Sex: Female
  Weight: 66 kg

DRUGS (5)
  1. FLUOROURACIL [Suspect]
     Indication: BREAST CANCER
     Dosage: 850 MG FREQ  IV
     Route: 042
     Dates: start: 20050913
  2. EPIRUBICIN [Suspect]
     Dosage: 165 MG FREQ  IV
     Route: 042
     Dates: start: 20050913
  3. CYCLOPHOSPHAMIDE [Suspect]
     Dosage: 850 MG FREQ
     Dates: start: 20050913
  4. DEXAMETHASONE [Concomitant]
  5. DOMPERIDONE [Concomitant]

REACTIONS (3)
  - MALAISE [None]
  - NEUTROPENIC SEPSIS [None]
  - STOMATITIS [None]
